FAERS Safety Report 23234206 (Version 1)
Quarter: 2023Q4

REPORT INFORMATION
  Report Type: Spontaneous
  Country: US (occurrence: None)
  Receive Date: 20231128
  Receipt Date: 20231128
  Transmission Date: 20240110
  Serious: No
  Sender: FDA-Public Use
  Company Number: 2023A254753

PATIENT

DRUGS (2)
  1. BYDUREON BCISE [Suspect]
     Active Substance: EXENATIDE
     Indication: Diabetes mellitus
     Route: 058
     Dates: start: 20231029
  2. BYETTA [Suspect]
     Active Substance: EXENATIDE
     Indication: Diabetes mellitus
     Route: 058

REACTIONS (5)
  - Peripheral swelling [Unknown]
  - Frustration tolerance decreased [Not Recovered/Not Resolved]
  - Abdominal pain upper [Unknown]
  - Device ineffective [Not Recovered/Not Resolved]
  - Product use issue [Not Recovered/Not Resolved]
